FAERS Safety Report 5166359-5 (Version None)
Quarter: 2006Q4

REPORT INFORMATION
  Report Type: 
  Country: None (occurrence: None)
  Receive Date: 20061124
  Receipt Date: 20061106
  Transmission Date: 20070319
  Serious: Yes (Hospitalization)
  Sender: FDA-Public Use
  Company Number: 2006BH014481

PATIENT
  Age: 16 Year
  Sex: Male
  Weight: 97 kg

DRUGS (1)
  1. GAMMAGARD LIQUID [Suspect]
     Indication: ACUTE LYMPHOCYTIC LEUKAEMIA
     Dosage: 40 GM; EVERY 4 WK; IV
     Route: 042
     Dates: start: 20060823

REACTIONS (4)
  - CHILLS [None]
  - HEADACHE [None]
  - HYPOTENSION [None]
  - PYREXIA [None]
